FAERS Safety Report 25731157 (Version 1)
Quarter: 2025Q3

REPORT INFORMATION
  Report Type: Spontaneous
  Country: JP (occurrence: JP)
  Receive Date: 20250827
  Receipt Date: 20250827
  Transmission Date: 20251020
  Serious: Yes (Hospitalization, Other)
  Sender: MERCK SHARP & DOHME LLC
  Company Number: JP-009507513-2322032

PATIENT
  Age: 60 Year
  Sex: Female

DRUGS (1)
  1. KEYTRUDA [Suspect]
     Active Substance: PEMBROLIZUMAB
     Indication: Cervix carcinoma stage III
     Dosage: 200 MG, Q3W
     Route: 041
     Dates: start: 202505

REACTIONS (3)
  - Febrile neutropenia [Recovered/Resolved]
  - Necrosis [Unknown]
  - Infection [Unknown]

NARRATIVE: CASE EVENT DATE: 20250701
